FAERS Safety Report 4872775-9 (Version None)
Quarter: 2006Q1

REPORT INFORMATION
  Report Type: 
  Country: None (occurrence: None)
  Receive Date: 20060105
  Receipt Date: 20051209
  Transmission Date: 20060701
  Serious: Yes (Other)
  Sender: FDA-Public Use
  Company Number: CA-BRISTOL-MYERS SQUIBB COMPANY-13218904

PATIENT
  Age: 92 Year
  Sex: Male

DRUGS (6)
  1. TEQUIN [Suspect]
     Route: 048
  2. CASODEX [Concomitant]
  3. DIABETA [Concomitant]
  4. LASIX [Concomitant]
  5. NORVASC [Concomitant]
  6. PANTOPRAZOLE SODIUM [Concomitant]

REACTIONS (1)
  - HYPOGLYCAEMIA [None]
